FAERS Safety Report 15854996 (Version 3)
Quarter: 2019Q2

REPORT INFORMATION
  Report Type: Report from Study
  Country: US (occurrence: US)
  Receive Date: 20190122
  Receipt Date: 20190415
  Transmission Date: 20190711
  Serious: Yes (Hospitalization, Other)
  Sender: FDA-Public Use
  Company Number: US-EMD SERONO-9064983

PATIENT
  Age: 31 Year
  Sex: Female

DRUGS (2)
  1. REBIF [Suspect]
     Active Substance: INTERFERON BETA-1A
     Route: 058
     Dates: start: 20190219
  2. REBIF [Suspect]
     Active Substance: INTERFERON BETA-1A
     Indication: PRODUCT USED FOR UNKNOWN INDICATION
     Route: 058
     Dates: start: 20180130, end: 20190112

REACTIONS (9)
  - Breast pain [Unknown]
  - Back pain [Unknown]
  - Cholelithiasis [Recovering/Resolving]
  - Streptococcal infection [Unknown]
  - Hypoaesthesia [Recovered/Resolved]
  - Aspartate aminotransferase increased [Recovered/Resolved]
  - Ear infection [Unknown]
  - Alanine aminotransferase increased [Recovered/Resolved]
  - Pain in extremity [Recovered/Resolved]

NARRATIVE: CASE EVENT DATE: 201901
